FAERS Safety Report 24186496 (Version 2)
Quarter: 2024Q3

REPORT INFORMATION
  Report Type: Spontaneous
  Country: JP (occurrence: JP)
  Receive Date: 20240808
  Receipt Date: 20240924
  Transmission Date: 20241017
  Serious: Yes (Other)
  Sender: SANOFI AVENTIS
  Company Number: JP-SA-2024SA227821

PATIENT
  Age: 41 Year
  Sex: Female

DRUGS (1)
  1. DUPIXENT [Suspect]
     Active Substance: DUPILUMAB
     Indication: Asthma
     Dosage: DAILY DOSE: 300, QOW
     Route: 058
     Dates: start: 20240607, end: 20240802

REACTIONS (3)
  - Pneumonia [Recovered/Resolved]
  - Cough [Recovered/Resolved]
  - Eosinophil count increased [Recovered/Resolved]

NARRATIVE: CASE EVENT DATE: 20240701
